FAERS Safety Report 8887087 (Version 3)
Quarter: 2013Q4

REPORT INFORMATION
  Report Type: Report from Study
  Country: GB (occurrence: GB)
  Receive Date: 20121105
  Receipt Date: 20131015
  Transmission Date: 20140711
  Serious: Yes (Hospitalization)
  Sender: FDA-Public Use
  Company Number: GB-UCBSA-070031

PATIENT
  Age: 6 Month
  Sex: Male
  Weight: 9.8 kg

DRUGS (10)
  1. KEPPRA [Suspect]
     Indication: EPILEPSY
     Dosage: 250  MG AM AND 300 MG PM
     Route: 048
     Dates: start: 20121013, end: 201210
  2. KEPPRA [Suspect]
     Indication: EPILEPSY
     Dosage: DOSE INCREASED
     Route: 048
     Dates: start: 20121009, end: 201210
  3. KEPPRA [Suspect]
     Indication: EPILEPSY
     Dosage: DOSE INCREASE
     Route: 048
     Dates: start: 20120913, end: 2012
  4. KEPPRA [Suspect]
     Indication: EPILEPSY
     Route: 048
     Dates: start: 2012, end: 2012
  5. VIGABATRIN [Concomitant]
     Indication: EPILEPSY
     Route: 048
     Dates: start: 20120731
  6. DOMPERIDONE [Concomitant]
     Indication: GASTROOESOPHAGEAL REFLUX DISEASE
     Route: 048
  7. CLOBAZAM [Concomitant]
     Indication: EPILEPSY
     Route: 048
     Dates: end: 20121015
  8. CLOBAZAM [Concomitant]
     Indication: EPILEPSY
     Route: 048
     Dates: start: 20121016, end: 20121018
  9. CLOBAZAM [Concomitant]
     Indication: EPILEPSY
     Route: 048
     Dates: start: 20121019, end: 20121021
  10. CLOBAZAM [Concomitant]
     Indication: EPILEPSY
     Dates: start: 20121021

REACTIONS (1)
  - Convulsion [Recovered/Resolved]
